FAERS Safety Report 7717135-8 (Version None)
Quarter: 2011Q3

REPORT INFORMATION
  Report Type: 
  Country: None (occurrence: None)
  Receive Date: 20110826
  Receipt Date: 20110826
  Transmission Date: 20111222
  Serious: Yes (Other)
  Sender: FDA-Public Use
  Company Number: None

PATIENT
  Age: 42 Year
  Sex: Female

DRUGS (1)
  1. IBUPROFEN [Suspect]
     Indication: ANALGESIC THERAPY
     Dosage: 800 MG 1 TIME IV
     Route: 042
     Dates: start: 20110726, end: 20110726

REACTIONS (4)
  - INFUSION RELATED REACTION [None]
  - INFUSION SITE PAIN [None]
  - PAIN IN EXTREMITY [None]
  - BURNING SENSATION [None]
